FAERS Safety Report 6356825-9 (Version None)
Quarter: 2009Q3

REPORT INFORMATION
  Report Type: 
  Country: None (occurrence: None)
  Receive Date: 20090915
  Receipt Date: 20090908
  Transmission Date: 20100115
  Serious: Yes (Other)
  Sender: FDA-Public Use
  Company Number: GB-ABBOTT-09P-167-0594140-00

PATIENT
  Age: 25 Year
  Sex: Male
  Weight: 70 kg

DRUGS (4)
  1. NORVIR [Suspect]
     Indication: HIV INFECTION
     Dates: start: 20090701
  2. DARUNAVIR [Suspect]
     Indication: HIV INFECTION
     Route: 048
     Dates: start: 20090701, end: 20090801
  3. SEPTRIN [Concomitant]
     Indication: DRUG USE FOR UNKNOWN INDICATION
     Route: 048
     Dates: start: 20090701
  4. VOLTAREN [Concomitant]
     Indication: DRUG USE FOR UNKNOWN INDICATION
     Route: 048
     Dates: start: 20090701

REACTIONS (2)
  - INSOMNIA [None]
  - MEMORY IMPAIRMENT [None]
